FAERS Safety Report 7093862-3 (Version None)
Quarter: 2010Q4

REPORT INFORMATION
  Report Type: 
  Country: None (occurrence: None)
  Receive Date: 20101110
  Receipt Date: 20101101
  Transmission Date: 20110411
  Serious: Yes (Hospitalization)
  Sender: FDA-Public Use
  Company Number: B0556468A

PATIENT
  Sex: Male

DRUGS (5)
  1. LAMICTAL [Suspect]
     Indication: EPILEPSY
     Dosage: 25MG PER DAY
     Route: 048
     Dates: start: 20081213, end: 20090117
  2. DEPAKENE [Concomitant]
     Indication: EPILEPSY
     Dosage: 400MG THREE TIMES PER DAY
     Route: 048
     Dates: start: 19970101, end: 20090117
  3. EXCEGRAN [Concomitant]
     Indication: EPILEPSY
     Dosage: 300MG PER DAY
     Route: 048
     Dates: start: 19970101, end: 20090117
  4. VALPROATE SODIUM [Concomitant]
  5. DIAZEPAM [Concomitant]

REACTIONS (16)
  - BLISTER [None]
  - CONJUNCTIVITIS [None]
  - DRUG ERUPTION [None]
  - DYSURIA [None]
  - GENERALISED ERYTHEMA [None]
  - GLOSSODYNIA [None]
  - MUCOSAL EROSION [None]
  - OEDEMA PERIPHERAL [None]
  - PYREXIA [None]
  - RASH GENERALISED [None]
  - SCAB [None]
  - SKIN EROSION [None]
  - SKIN EXFOLIATION [None]
  - STEVENS-JOHNSON SYNDROME [None]
  - SWELLING FACE [None]
  - TONGUE DISORDER [None]
